FAERS Safety Report 23883722 (Version 1)
Quarter: 2024Q2

REPORT INFORMATION
  Report Type: Spontaneous
  Country: NL (occurrence: NL)
  Receive Date: 20240522
  Receipt Date: 20240522
  Transmission Date: 20240716
  Serious: Yes (Hospitalization)
  Sender: FDA-Public Use
  Company Number: None

PATIENT
  Age: 62 Year
  Sex: Male
  Weight: 94 kg

DRUGS (13)
  1. ATORVASTATIN [Suspect]
     Active Substance: ATORVASTATIN
     Indication: Prophylaxis
     Dosage: TABLET, 20 MG (MILLIGRAM),
     Dates: start: 20161018, end: 20240310
  2. ASCORBIC ACID [Concomitant]
     Active Substance: ASCORBIC ACID
     Dosage: TABLET, 500 MG (MILLIGRAM)
  3. LACTULOSE [Concomitant]
     Active Substance: LACTULOSE
     Dosage: STROOP, 670 MG/ML (MILLIGRAM PER MILLILITER)
  4. ZINC SULFATE [Concomitant]
     Active Substance: ZINC SULFATE
     Dosage: ORAL SOLUTION, 10 MG/ML (MILLIGRAMS PER MILLILITER)
  5. THIAMINE [Concomitant]
     Active Substance: THIAMINE
     Dosage: TABLET, 50 MG (MILLIGRAM)
  6. CYANOCOBALAMIN\PYRIDOXINE HYDROCHLORIDE\RIBOFLAVIN\SODIUM PANTOTHENATE [Concomitant]
     Active Substance: CYANOCOBALAMIN\PYRIDOXINE HYDROCHLORIDE\RIBOFLAVIN\SODIUM PANTOTHENATE\THIAMINE HYDROCHLORIDE\VITAMI
     Dosage: TABLET
  7. LEVETIRACETAM [Concomitant]
     Active Substance: LEVETIRACETAM
     Dosage: FILMOMHULDE TABLET, 500 MG (MILLIGRAM)
  8. SPIRONOLACTONE [Concomitant]
     Active Substance: SPIRONOLACTONE
     Dosage: TABLET, 25 MG (MILLIGRAM)
  9. TRIAMCINOLONE ACETONIDE [Concomitant]
     Active Substance: TRIAMCINOLONE ACETONIDE
     Dosage: CREME, 1 MG/G (MILLIGRAM PER GRAM)
  10. FUROSEMIDE [Concomitant]
     Active Substance: FUROSEMIDE
     Dosage: TABLET, 40 MG (MILLIGRAM)
  11. ESOMEPRAZOLE [Concomitant]
     Active Substance: ESOMEPRAZOLE
     Dosage: MAAGSAPRESISTENTE CAPSULE, 40 MG (MILLIGRAM)
  12. CARBOMER [Concomitant]
     Active Substance: CARBOMER
     Dosage: OOGGEL, 2 MG/G (MILLIGRAM PER GRAM)
  13. AMLODIPINE [Concomitant]
     Active Substance: AMLODIPINE BESYLATE
     Dosage: TABLET, 5 MG (MILLIGRAM)

REACTIONS (1)
  - Dermatomyositis [Recovered/Resolved]
